FAERS Safety Report 13885944 (Version 2)
Quarter: 2017Q3

REPORT INFORMATION
  Report Type: Spontaneous
  Country: US (occurrence: US)
  Receive Date: 20170821
  Receipt Date: 20170825
  Transmission Date: 20171127
  Serious: No
  Sender: FDA-Public Use
  Company Number: US-FRESENIUS KABI-FK201707046

PATIENT
  Age: 71 Year
  Sex: Male
  Weight: 74.8 kg

DRUGS (3)
  1. BIVALIRUDIN FOR INJECTION [Suspect]
     Active Substance: BIVALIRUDIN
     Route: 041
     Dates: start: 20170816, end: 20170816
  2. HEPARIN [Concomitant]
     Active Substance: HEPARIN SODIUM
     Indication: PRODUCT USED FOR UNKNOWN INDICATION
     Route: 042
  3. BIVALIRUDIN FOR INJECTION [Suspect]
     Active Substance: BIVALIRUDIN
     Indication: ANTICOAGULANT THERAPY
     Route: 040
     Dates: start: 20170816, end: 20170816

REACTIONS (3)
  - Cardiac arrest [Recovered/Resolved]
  - Drug ineffective [Recovered/Resolved]
  - Thrombosis [Recovered/Resolved]

NARRATIVE: CASE EVENT DATE: 20170816
